FAERS Safety Report 9391195 (Version 1)
Quarter: 2013Q3

REPORT INFORMATION
  Report Type: Spontaneous
  Country: ES (occurrence: ES)
  Receive Date: 20130709
  Receipt Date: 20130709
  Transmission Date: 20140515
  Serious: Yes (Other)
  Sender: FDA-Public Use
  Company Number: ES-ASTRAZENECA-2013SE50061

PATIENT
  Age: 61 Year
  Sex: Female

DRUGS (2)
  1. MEROPENEM [Suspect]
     Indication: PYREXIA
     Route: 042
  2. MEROPENEM [Suspect]
     Indication: VOMITING
     Route: 042

REACTIONS (3)
  - Mucous membrane disorder [Recovered/Resolved]
  - Type IV hypersensitivity reaction [Recovered/Resolved]
  - Rash erythematous [Recovered/Resolved]
